FAERS Safety Report 6208214-5 (Version None)
Quarter: 2009Q2

REPORT INFORMATION
  Report Type: 
  Country: None (occurrence: None)
  Receive Date: 20090529
  Receipt Date: 20090518
  Transmission Date: 20091009
  Serious: Yes (Other)
  Sender: FDA-Public Use
  Company Number: PHHY2009BE18661

PATIENT
  Sex: Female

DRUGS (2)
  1. MIACALCIN [Suspect]
     Indication: COMPLEX REGIONAL PAIN SYNDROME
     Dosage: 50 IU
     Dates: start: 20070101
  2. MIACALCIN [Suspect]
     Dosage: 100 IU

REACTIONS (5)
  - DRUG INTOLERANCE [None]
  - INJECTION SITE INDURATION [None]
  - MALAISE [None]
  - VOMITING [None]
  - WEIGHT DECREASED [None]
